FAERS Safety Report 9338553 (Version 3)
Quarter: 2013Q3

REPORT INFORMATION
  Report Type: Spontaneous
  Country: US (occurrence: US)
  Receive Date: 20130610
  Receipt Date: 20130731
  Transmission Date: 20140515
  Serious: No
  Sender: FDA-Public Use
  Company Number: US-PFIZER INC-2013173163

PATIENT
  Sex: Female

DRUGS (1)
  1. CHANTIX [Suspect]
     Dosage: UNK

REACTIONS (8)
  - Paraesthesia [Unknown]
  - Headache [Unknown]
  - Flatulence [Unknown]
  - Abdominal distension [Unknown]
  - Insomnia [Unknown]
  - Poor quality sleep [Unknown]
  - Drug intolerance [Unknown]
  - Muscle twitching [Unknown]
